FAERS Safety Report 8218860-5 (Version None)
Quarter: 2012Q1

REPORT INFORMATION
  Report Type: 
  Country: None (occurrence: None)
  Receive Date: 20120319
  Receipt Date: 20120314
  Transmission Date: 20120608
  Serious: Yes (Hospitalization)
  Sender: FDA-Public Use
  Company Number: US-GILEAD-2012-0051251

PATIENT
  Sex: Female

DRUGS (5)
  1. LETAIRIS [Suspect]
     Indication: TRANSPOSITION OF THE GREAT VESSELS
  2. LETAIRIS [Suspect]
     Indication: PULMONARY FUNCTION TEST ABNORMAL
  3. LETAIRIS [Suspect]
     Indication: CARDIAC FAILURE
  4. LETAIRIS [Suspect]
     Indication: PULMONARY HYPERTENSION
     Dosage: 5 MG, UNK
     Route: 048
     Dates: start: 20111122
  5. LETAIRIS [Suspect]
     Indication: PULMONARY VASCULAR RESISTANCE ABNORMALITY

REACTIONS (4)
  - CARDIAC FAILURE [None]
  - PULMONARY HYPERTENSION [None]
  - CHEST PAIN [None]
  - RESPIRATORY DISTRESS [None]
